FAERS Safety Report 6138352-7 (Version None)
Quarter: 2009Q1

REPORT INFORMATION
  Report Type: 
  Country: None (occurrence: None)
  Receive Date: 20090327
  Receipt Date: 20090327
  Transmission Date: 20090719
  Serious: Yes (Hospitalization)
  Sender: FDA-Public Use
  Company Number: None

PATIENT
  Sex: Male
  Weight: 108 kg

DRUGS (2)
  1. CYTARABINE [Suspect]
     Dosage: 3150 MG
     Dates: end: 20090129
  2. DAUNORUBICIN HCL [Suspect]
     Dosage: 405 MG
     Dates: end: 20090125

REACTIONS (3)
  - DYSPNOEA [None]
  - ISCHAEMIC HEPATITIS [None]
  - MULTI-ORGAN FAILURE [None]
